FAERS Safety Report 6377876-4 (Version None)
Quarter: 2009Q3

REPORT INFORMATION
  Report Type: 
  Country: None (occurrence: None)
  Receive Date: 20090925
  Receipt Date: 20090915
  Transmission Date: 20100115
  Serious: Yes (Other)
  Sender: FDA-Public Use
  Company Number: PHHY2009FR05400

PATIENT
  Sex: Male
  Weight: 86 kg

DRUGS (3)
  1. COTAREG [Suspect]
     Indication: HYPERTENSION
     Dosage: 1 DF, QD
     Dates: start: 20061208, end: 20090325
  2. TAHOR [Concomitant]
     Dosage: 1 DF, QD
     Dates: start: 20090325
  3. KARDEGIC [Concomitant]
     Dosage: 75 MG, QD
     Dates: start: 20090325

REACTIONS (8)
  - ANGIOEDEMA [None]
  - DYSPHAGIA [None]
  - FACE OEDEMA [None]
  - JOINT SWELLING [None]
  - OEDEMA GENITAL [None]
  - OEDEMA PERIPHERAL [None]
  - RESPIRATORY DISTRESS [None]
  - URTICARIA [None]
